FAERS Safety Report 5718011-2 (Version None)
Quarter: 2008Q2

REPORT INFORMATION
  Report Type: 
  Country: None (occurrence: None)
  Receive Date: 20080425
  Receipt Date: 20080418
  Transmission Date: 20081010
  Serious: Yes (Hospitalization)
  Sender: FDA-Public Use
  Company Number: B0517673A

PATIENT
  Age: 50 Year
  Sex: Male

DRUGS (5)
  1. DARAPRIM [Suspect]
     Indication: TOXOPLASMOSIS
     Dosage: 50MG PER DAY
     Route: 048
  2. ZIAGEN [Suspect]
     Dosage: 300MG TWICE PER DAY
     Route: 048
  3. VIREAD [Suspect]
     Dosage: 300MG PER DAY
     Route: 065
  4. KALETRA [Suspect]
     Indication: HIV INFECTION
     Route: 065
  5. CLINDAMYCIN HCL [Concomitant]
     Dosage: 900MG THREE TIMES PER DAY
     Route: 048

REACTIONS (4)
  - EOSINOPHILIC FASCIITIS [None]
  - FOLATE DEFICIENCY [None]
  - PANCYTOPENIA [None]
  - PYREXIA [None]
